FAERS Safety Report 4382651-6 (Version None)
Quarter: 2004Q2

REPORT INFORMATION
  Report Type: 
  Country: None (occurrence: None)
  Receive Date: 20040622
  Receipt Date: 20040608
  Transmission Date: 20050107
  Serious: Yes (Hospitalization, Other)
  Sender: FDA-Public Use
  Company Number: ZA-GLAXOSMITHKLINE-B0335406A

PATIENT
  Age: 30 Year
  Sex: Male

DRUGS (3)
  1. COMBIVIR [Suspect]
     Indication: SYSTEMIC ANTIVIRAL TREATMENT
     Dosage: 150MG TWICE PER DAY
     Route: 048
     Dates: start: 20040122, end: 20040531
  2. EFAVIRENZ [Concomitant]
     Indication: SYSTEMIC ANTIVIRAL TREATMENT
     Dosage: 600MG PER DAY
     Route: 048
     Dates: start: 20040122, end: 20040531
  3. PURBAC [Concomitant]
     Indication: PROPHYLAXIS
     Dosage: 960MG PER DAY
     Route: 048
     Dates: start: 20040122

REACTIONS (4)
  - ANAEMIA [None]
  - BLOOD SODIUM DECREASED [None]
  - HYPOVOLAEMIC SHOCK [None]
  - MEAN CELL VOLUME INCREASED [None]
